FAERS Safety Report 25932157 (Version 2)
Quarter: 2025Q4

REPORT INFORMATION
  Report Type: Spontaneous
  Country: US (occurrence: US)
  Receive Date: 20251016
  Receipt Date: 20251113
  Transmission Date: 20260117
  Serious: Yes (Hospitalization, Other)
  Sender: NEUROCRINE BIOSCIENCES
  Company Number: US-NEUROCRINE BIOSCIENCES INC.-2025NBI13355

PATIENT
  Sex: Male

DRUGS (1)
  1. INGREZZA [Suspect]
     Active Substance: VALBENAZINE DITOSYLATE
     Indication: Tardive dyskinesia
     Dosage: UNK, QD
     Route: 065

REACTIONS (8)
  - Seizure [Unknown]
  - Craniocerebral injury [Unknown]
  - Asthma [Unknown]
  - Balance disorder [Unknown]
  - Muscle rigidity [Unknown]
  - Restlessness [Unknown]
  - Dizziness [Unknown]
  - Parkinsonism [Unknown]
